FAERS Safety Report 26001275 (Version 2)
Quarter: 2025Q4

REPORT INFORMATION
  Report Type: Spontaneous
  Country: EG (occurrence: EG)
  Receive Date: 20251105
  Receipt Date: 20251117
  Transmission Date: 20260117
  Serious: Yes (Other)
  Sender: NOVO NORDISK
  Company Number: EG-NOVOPROD-1550450

PATIENT
  Age: 216 Month
  Sex: Male

DRUGS (5)
  1. NOVORAPID [Suspect]
     Active Substance: INSULIN ASPART
     Indication: Diabetes mellitus
     Dosage: 12 IU, TID
     Route: 058
  2. ACTRAPID [Suspect]
     Active Substance: INSULIN HUMAN
     Indication: Product used for unknown indication
     Dosage: UNK
  3. BIOCARB [Concomitant]
     Indication: Nephropathy
     Dosage: 2 TAB/12 HR
     Route: 048
  4. CALCINATE [CALCIUM CARBONATE] [Concomitant]
     Indication: Calcium deficiency
     Dosage: 2 TAB/8 HR
     Route: 048
  5. TOUJEO [Concomitant]
     Active Substance: INSULIN GLARGINE
     Indication: Diabetes mellitus
     Dosage: 25 U
     Route: 058

REACTIONS (2)
  - Limb deformity [Recovered/Resolved with Sequelae]
  - Dyskinesia [Not Recovered/Not Resolved]
